FAERS Safety Report 23196380 (Version 1)
Quarter: 2023Q4

REPORT INFORMATION
  Report Type: Spontaneous
  Country: US (occurrence: None)
  Receive Date: 20231116
  Receipt Date: 20231116
  Transmission Date: 20240110
  Serious: Yes (Other)
  Sender: FDA-Public Use
  Company Number: None

PATIENT
  Age: 24 Year
  Sex: Female
  Weight: 94.5 kg

DRUGS (3)
  1. REXULTI [Suspect]
     Active Substance: BREXPIPRAZOLE
     Indication: Anxiety
     Dosage: 1 TABLET DAILY OAL
     Route: 048
     Dates: start: 20231010
  2. REXULTI [Suspect]
     Active Substance: BREXPIPRAZOLE
     Indication: Depression
  3. FLUOXETINE [Suspect]
     Active Substance: FLUOXETINE HYDROCHLORIDE

REACTIONS (6)
  - Viral infection [None]
  - Increased appetite [None]
  - Cognitive disorder [None]
  - Therapy interrupted [None]
  - Brain fog [None]
  - Fatigue [None]

NARRATIVE: CASE EVENT DATE: 20231112
